FAERS Safety Report 5823197-5 (Version None)
Quarter: 2008Q3

REPORT INFORMATION
  Report Type: 
  Country: None (occurrence: None)
  Receive Date: 20080725
  Receipt Date: 20080718
  Transmission Date: 20090109
  Serious: Yes (Other)
  Sender: FDA-Public Use
  Company Number: PHBS2008US05194

PATIENT
  Age: 40 Year
  Sex: Male

DRUGS (3)
  1. LOPRESSOR [Suspect]
     Indication: HYPERTENSION
  2. ASPIRIN [Concomitant]
  3. CLOPIDOGREL [Concomitant]

REACTIONS (6)
  - ARTERY DISSECTION [None]
  - CEREBELLAR SYNDROME [None]
  - DYSARTHRIA [None]
  - HEADACHE [None]
  - STENT PLACEMENT [None]
  - VASCULAR PSEUDOANEURYSM [None]
